FAERS Safety Report 16242105 (Version 1)
Quarter: 2019Q2

REPORT INFORMATION
  Report Type: Spontaneous
  Country: ES (occurrence: ES)
  Receive Date: 20190426
  Receipt Date: 20190426
  Transmission Date: 20190711
  Serious: Yes (Death, Other)
  Sender: FDA-Public Use
  Company Number: ES-BRISTOL-MYERS SQUIBB COMPANY-BMS-2019-041144

PATIENT
  Age: 57 Year
  Sex: Female

DRUGS (3)
  1. NINTEDANIB [Suspect]
     Active Substance: NINTEDANIB
     Indication: ADENOCARCINOMA
     Dosage: UNK
     Route: 065
     Dates: start: 201801
  2. NIVOLUMAB [Suspect]
     Active Substance: NIVOLUMAB
     Indication: ADENOCARCINOMA
     Dosage: UNAVAILABLE
     Route: 065
     Dates: start: 201701
  3. DOCETAXEL. [Suspect]
     Active Substance: DOCETAXEL
     Indication: ADENOCARCINOMA
     Dosage: UNK
     Route: 065
     Dates: start: 201801

REACTIONS (1)
  - Death [Fatal]

NARRATIVE: CASE EVENT DATE: 201810
